FAERS Safety Report 5122766-8 (Version None)
Quarter: 2006Q4

REPORT INFORMATION
  Report Type: 
  Country: None (occurrence: None)
  Receive Date: 20061009
  Receipt Date: 20060715
  Transmission Date: 20070319
  Serious: Yes (Death, Hospitalization, Other)
  Sender: FDA-Public Use
  Company Number: PHHO2006BR11531

PATIENT
  Age: 62 Year
  Sex: Female
  Weight: 62 kg

DRUGS (8)
  1. ZELMAC / HTF 919A [Suspect]
     Route: 048
     Dates: start: 20060101
  2. KAVA [Concomitant]
  3. ONDANSETRON [Concomitant]
  4. MELILOT [Concomitant]
  5. ARGININE [Concomitant]
  6. MOTILIUM [Concomitant]
  7. TRIMEBUTINE MALEATE [Concomitant]
  8. LEXOTAN [Concomitant]
     Indication: SLEEP DISORDER

REACTIONS (12)
  - ASTHENIA [None]
  - BLOOD PRESSURE INADEQUATELY CONTROLLED [None]
  - DECREASED APPETITE [None]
  - HAEMORRHAGE [None]
  - INTESTINAL OBSTRUCTION [None]
  - MALIGNANT NEOPLASM PROGRESSION [None]
  - METASTASIS [None]
  - MULTI-ORGAN FAILURE [None]
  - SHOCK [None]
  - SURGERY [None]
  - VOMITING [None]
  - WEIGHT DECREASED [None]
